FAERS Safety Report 24040152 (Version 2)
Quarter: 2024Q3

REPORT INFORMATION
  Report Type: Spontaneous
  Country: CA (occurrence: CA)
  Receive Date: 20240702
  Receipt Date: 20240715
  Transmission Date: 20241017
  Serious: No
  Sender: USPHARMA
  Company Number: CA-USP-004881

PATIENT
  Sex: Male

DRUGS (2)
  1. NITRO-DUR [Suspect]
     Active Substance: NITROGLYCERIN
     Indication: Product used for unknown indication
     Dosage: USING FROM OVER FIVER YEARS
     Route: 062
     Dates: start: 20130501
  2. NITRO-DUR [Suspect]
     Active Substance: NITROGLYCERIN
     Indication: Product used for unknown indication
     Dosage: USING FROM OVER FIVER YEARS
     Route: 062

REACTIONS (1)
  - Rash [Unknown]
